FAERS Safety Report 13675572 (Version 2)
Quarter: 2017Q3

REPORT INFORMATION
  Report Type: Spontaneous
  Country: US (occurrence: US)
  Receive Date: 20170621
  Receipt Date: 20170712
  Transmission Date: 20171127
  Serious: Yes (Death, Disabling)
  Sender: FDA-Public Use
  Company Number: US-LUNDBECK-DKLU2032869

PATIENT
  Age: 75 Year
  Sex: Male
  Weight: 86 kg

DRUGS (2)
  1. NORTHERA [Suspect]
     Active Substance: DROXIDOPA
     Indication: AUTONOMIC NEUROPATHY
  2. NORTHERA [Suspect]
     Active Substance: DROXIDOPA
     Indication: ORTHOSTATIC HYPOTENSION
     Route: 048
     Dates: start: 20160801, end: 20170601

REACTIONS (3)
  - Depression [Unknown]
  - Completed suicide [Fatal]
  - Limb injury [Unknown]

NARRATIVE: CASE EVENT DATE: 20170601
